FAERS Safety Report 5261286-7 (Version None)
Quarter: 2007Q1

REPORT INFORMATION
  Report Type: 
  Country: None (occurrence: None)
  Receive Date: 20070309
  Receipt Date: 20070228
  Transmission Date: 20070707
  Serious: Yes (Other)
  Sender: FDA-Public Use
  Company Number: IE-PFIZER INC-2007017214

PATIENT
  Age: 47 Year
  Sex: Male

DRUGS (4)
  1. VIAGRA [Suspect]
     Route: 048
  2. CLARITHROMYCIN [Interacting]
     Indication: GASTRIC ULCER
  3. OMEPRAZOLE [Interacting]
     Indication: GASTRIC ULCER
  4. AMOXICILLIN [Interacting]
     Indication: GASTRIC ULCER

REACTIONS (3)
  - AMNESIA [None]
  - CONVULSION [None]
  - DRUG INTERACTION [None]
